FAERS Safety Report 4531152-0 (Version None)
Quarter: 2004Q4

REPORT INFORMATION
  Report Type: 
  Country: None (occurrence: None)
  Receive Date: 20041216
  Receipt Date: 20041203
  Transmission Date: 20050328
  Serious: Yes (Other)
  Sender: FDA-Public Use
  Company Number: 2004105931

PATIENT
  Age: 79 Year
  Sex: Male

DRUGS (8)
  1. GABAPENTIN [Suspect]
     Indication: PAIN
     Dosage: ORAL
     Route: 048
     Dates: start: 20041029, end: 20041101
  2. CYCLIZINE (CYCLIZINE) [Concomitant]
  3. DICLOFENAC (DICLOFENAC) [Concomitant]
  4. FUROSEMIDE [Concomitant]
  5. OMEPRAZOLE [Concomitant]
  6. BISOPROLOL (BISOPROLOL) [Concomitant]
  7. LACIDIPINE (LACIDIPINE) [Concomitant]
  8. MORPHINE SULFATE [Concomitant]

REACTIONS (4)
  - ATAXIA [None]
  - CONFUSIONAL STATE [None]
  - DEPRESSED LEVEL OF CONSCIOUSNESS [None]
  - MUSCLE TWITCHING [None]
